FAERS Safety Report 10434293 (Version 3)
Quarter: 2015Q1

REPORT INFORMATION
  Report Type: Spontaneous
  Country: US (occurrence: US)
  Receive Date: 20140905
  Receipt Date: 20150205
  Transmission Date: 20150720
  Serious: Yes (Congenital Anomaly)
  Sender: FDA-Public Use
  Company Number: US-009507513-1408USA017060

PATIENT
  Sex: Male

DRUGS (2)
  1. VIREAD [Suspect]
     Active Substance: TENOFOVIR DISOPROXIL FUMARATE
     Dosage: 300 MG, QD
     Route: 064
     Dates: start: 20110808
  2. ISENTRESS [Suspect]
     Active Substance: RALTEGRAVIR POTASSIUM
     Dosage: 400 MG, QD
     Route: 064
     Dates: start: 20110808

REACTIONS (3)
  - Pyelocaliectasis [Recovered/Resolved]
  - Foetal exposure during pregnancy [Unknown]
  - Pyelocaliectasis [Recovered/Resolved]

NARRATIVE: CASE EVENT DATE: 20121206
